FAERS Safety Report 19277875 (Version 1)
Quarter: 2021Q2

REPORT INFORMATION
  Report Type: Spontaneous
  Country: ES (occurrence: ES)
  Receive Date: 20210520
  Receipt Date: 20210520
  Transmission Date: 20210717
  Serious: Yes (Death)
  Sender: FDA-Public Use
  Company Number: ES-ABBVIE-21K-144-3912205-00

PATIENT
  Age: 63 Year
  Sex: Female

DRUGS (1)
  1. IMBRUVICA [Suspect]
     Active Substance: IBRUTINIB
     Indication: HAIRY CELL LEUKAEMIA RECURRENT
     Route: 048

REACTIONS (4)
  - Toxicity to various agents [Fatal]
  - Off label use [Unknown]
  - Disease progression [Fatal]
  - Product use in unapproved indication [Unknown]
